FAERS Safety Report 17909126 (Version 9)
Quarter: 2022Q4

REPORT INFORMATION
  Report Type: Spontaneous
  Country: CA (occurrence: CA)
  Receive Date: 20200617
  Receipt Date: 20221201
  Transmission Date: 20230113
  Serious: Yes (Hospitalization, Other)
  Sender: FDA-Public Use
  Company Number: CA-BRISTOL-MYERS SQUIBB COMPANY-BMS-2020-046445

PATIENT
  Sex: Male

DRUGS (42)
  1. APIXABAN [Suspect]
     Active Substance: APIXABAN
     Indication: Product used for unknown indication
     Dosage: 5 MILLIGRAM, QD
     Route: 065
  2. APIXABAN [Suspect]
     Active Substance: APIXABAN
  3. APIXABAN [Suspect]
     Active Substance: APIXABAN
  4. SPIRONOLACTONE AND HYDROCHLOROTHIAZIDE [Concomitant]
     Active Substance: HYDROCHLOROTHIAZIDE\SPIRONOLACTONE
     Indication: Product used for unknown indication
     Dosage: 25 MILLIGRAM, QD
     Route: 065
  5. AMIODARONE HYDROCHLORIDE [Concomitant]
     Active Substance: AMIODARONE HYDROCHLORIDE
     Indication: Product used for unknown indication
     Dosage: 200 MILLIGRAM, QD
     Route: 065
  6. COSENTYX [Concomitant]
     Active Substance: SECUKINUMAB
     Indication: Psoriatic arthropathy
     Dosage: ??
     Route: 065
  7. COSENTYX [Concomitant]
     Active Substance: SECUKINUMAB
  8. COSENTYX [Concomitant]
     Active Substance: SECUKINUMAB
  9. ENBREL [Concomitant]
     Active Substance: ETANERCEPT
     Indication: Psoriatic arthropathy
     Dosage: UNK
     Route: 065
  10. ENBREL [Concomitant]
     Active Substance: ETANERCEPT
  11. ENBREL [Concomitant]
     Active Substance: ETANERCEPT
  12. METHOTREXATE SODIUM [Concomitant]
     Active Substance: METHOTREXATE SODIUM
     Indication: Psoriatic arthropathy
     Dosage: 25 MILLIGRAM, QWK
     Route: 058
  13. SULFASALAZINE [Concomitant]
     Active Substance: SULFASALAZINE
     Indication: Product used for unknown indication
     Dosage: 3 GRAM, QD
     Route: 065
  14. SULFASALAZINE [Concomitant]
     Active Substance: SULFASALAZINE
  15. SULFASALAZINE [Concomitant]
     Active Substance: SULFASALAZINE
  16. TALTZ [Concomitant]
     Active Substance: IXEKIZUMAB
     Indication: Psoriatic arthropathy
     Dosage: UNK UNK, QD
     Route: 065
  17. TALTZ [Concomitant]
     Active Substance: IXEKIZUMAB
  18. TALTZ [Concomitant]
     Active Substance: IXEKIZUMAB
  19. FOLIC ACID [Concomitant]
     Active Substance: FOLIC ACID
     Indication: Product used for unknown indication
     Dosage: 1 DOSAGE FORM, QD
     Route: 065
  20. FOLIC ACID [Concomitant]
     Active Substance: FOLIC ACID
  21. FOLIC ACID [Concomitant]
     Active Substance: FOLIC ACID
  22. LASIX [Concomitant]
     Active Substance: FUROSEMIDE
     Indication: Product used for unknown indication
     Dosage: 20 MILLIGRAM, BID
     Route: 065
  23. LASIX [Concomitant]
     Active Substance: FUROSEMIDE
  24. LASIX [Concomitant]
     Active Substance: FUROSEMIDE
  25. METOPROLOL TARTRATE [Concomitant]
     Active Substance: METOPROLOL TARTRATE
     Indication: Product used for unknown indication
     Dosage: 12.5 MILLIGRAM, QD
     Route: 065
  26. METOPROLOL TARTRATE [Concomitant]
     Active Substance: METOPROLOL TARTRATE
  27. METOPROLOL TARTRATE [Concomitant]
     Active Substance: METOPROLOL TARTRATE
  28. OMEPRAZOLE [Concomitant]
     Active Substance: OMEPRAZOLE
     Indication: Product used for unknown indication
     Dosage: 20 MILLIGRAM, QD
     Route: 065
  29. OMEPRAZOLE [Concomitant]
     Active Substance: OMEPRAZOLE
  30. OMEPRAZOLE [Concomitant]
     Active Substance: OMEPRAZOLE
  31. HYDROXYCHLOROQUINE SULFATE [Concomitant]
     Active Substance: HYDROXYCHLOROQUINE SULFATE
     Indication: Psoriatic arthropathy
     Dosage: UNK
     Route: 065
  32. HYDROXYCHLOROQUINE SULFATE [Concomitant]
     Active Substance: HYDROXYCHLOROQUINE SULFATE
  33. HYDROXYCHLOROQUINE SULFATE [Concomitant]
     Active Substance: HYDROXYCHLOROQUINE SULFATE
  34. PREDNISONE [Concomitant]
     Active Substance: PREDNISONE
     Indication: Psoriatic arthropathy
     Dosage: 20 MILLIGRAM, QD
     Route: 058
  35. PREDNISONE [Concomitant]
     Active Substance: PREDNISONE
  36. PREDNISONE [Concomitant]
     Active Substance: PREDNISONE
  37. RAMIPRIL [Concomitant]
     Active Substance: RAMIPRIL
     Indication: Psoriatic arthropathy
     Dosage: 10 MILLIGRAM, QD
     Route: 065
  38. RAMIPRIL [Concomitant]
     Active Substance: RAMIPRIL
  39. RAMIPRIL [Concomitant]
     Active Substance: RAMIPRIL
  40. IXEKIZUMAB [Concomitant]
     Active Substance: IXEKIZUMAB
     Indication: Psoriatic arthropathy
     Dosage: 1 DOSAGE FORM 1 EVERY 1 DAYS
     Route: 065
  41. IXEKIZUMAB [Concomitant]
     Active Substance: IXEKIZUMAB
  42. IXEKIZUMAB [Concomitant]
     Active Substance: IXEKIZUMAB

REACTIONS (3)
  - Ejection fraction decreased [Unknown]
  - Cardiac failure congestive [Unknown]
  - Off label use [Unknown]
